FAERS Safety Report 5318642-8 (Version None)
Quarter: 2007Q2

REPORT INFORMATION
  Report Type: 
  Country: None (occurrence: None)
  Receive Date: 20070508
  Receipt Date: 20070430
  Transmission Date: 20071010
  Serious: Yes (Life-Threatening)
  Sender: FDA-Public Use
  Company Number: PHHO2007FR07469

PATIENT
  Age: 14 Year
  Sex: Male
  Weight: 54.5 kg

DRUGS (1)
  1. ZOLEDRONIC ACID [Suspect]
     Indication: BONE SARCOMA
     Dosage: 4 MG, UNK
     Route: 042
     Dates: start: 20070427, end: 20070427

REACTIONS (5)
  - ELECTROCARDIOGRAM QT PROLONGED [None]
  - HYPOCALCAEMIA [None]
  - HYPOKALAEMIA [None]
  - HYPONATRAEMIA [None]
  - PARAESTHESIA [None]
